FAERS Safety Report 17065993 (Version 2)
Quarter: 2020Q4

REPORT INFORMATION
  Report Type: Report from Study
  Country: ID (occurrence: ID)
  Receive Date: 20191122
  Receipt Date: 20201224
  Transmission Date: 20210113
  Serious: Yes (Hospitalization, Other)
  Sender: FDA-Public Use
  Company Number: ID-ASTRAZENECA-2019SF42001

PATIENT
  Sex: Male

DRUGS (1)
  1. TAGRISSO [Suspect]
     Active Substance: OSIMERTINIB
     Indication: NON-SMALL CELL LUNG CANCER
     Route: 048
     Dates: start: 20190706, end: 20191103

REACTIONS (10)
  - Swelling face [Unknown]
  - Metastases to spleen [Unknown]
  - Vomiting [Unknown]
  - Skin discolouration [Unknown]
  - Vascular occlusion [Unknown]
  - Cough [Unknown]
  - Swelling [Unknown]
  - Asthenia [Unknown]
  - Pleural effusion [Unknown]
  - Nausea [Unknown]
